FAERS Safety Report 6939988-3 (Version None)
Quarter: 2010Q3

REPORT INFORMATION
  Report Type: 
  Country: None (occurrence: None)
  Receive Date: 20100825
  Receipt Date: 20100815
  Transmission Date: 20110219
  Serious: Yes (Other)
  Sender: FDA-Public Use
  Company Number: CA-JNJFOC-20100806430

PATIENT
  Sex: Male
  Weight: 72 kg

DRUGS (4)
  1. REMICADE [Suspect]
     Indication: CROHN'S DISEASE
     Route: 042
  2. IMURAN [Concomitant]
     Dosage: DAILY
  3. FLOVENT [Concomitant]
  4. VENTOLIN [Concomitant]
     Dosage: PRN

REACTIONS (1)
  - NEPHROLITHIASIS [None]
